FAERS Safety Report 11167691 (Version 1)
Quarter: 2015Q2

REPORT INFORMATION
  Report Type: Spontaneous
  Country: US (occurrence: None)
  Receive Date: 20150604
  Receipt Date: 20150604
  Transmission Date: 20150821
  Serious: Yes (Disabling)
  Sender: FDA-Public Use
  Company Number: None

PATIENT
  Age: 68 Year
  Sex: Female
  Weight: 77.11 kg

DRUGS (22)
  1. PROLIA [Suspect]
     Active Substance: DENOSUMAB
     Indication: BONE LOSS
     Dates: start: 201408, end: 201506
  2. MOBIC [Concomitant]
     Active Substance: MELOXICAM
  3. MIRALAX [Concomitant]
     Active Substance: POLYETHYLENE GLYCOL 3350
  4. PROLIA [Suspect]
     Active Substance: DENOSUMAB
     Indication: PROPHYLAXIS
     Dates: start: 201408, end: 201506
  5. 600+D3 CALTRATE CALCIUM [Concomitant]
  6. ANTANCIDS [Concomitant]
  7. BEANO [Concomitant]
     Active Substance: ASPERGILLUS NIGER .ALPHA.-GALACTOSIDASE
  8. PROTONIX [Concomitant]
     Active Substance: PANTOPRAZOLE SODIUM
  9. AMLODIPINE [Concomitant]
     Active Substance: AMLODIPINE BESYLATE
  10. PROLIA [Suspect]
     Active Substance: DENOSUMAB
     Indication: GASTRIC DISORDER
     Dates: start: 201408, end: 201506
  11. TRAMADOL [Concomitant]
     Active Substance: TRAMADOL
  12. TRAMADOL [Concomitant]
     Active Substance: TRAMADOL
  13. CARAFATE [Concomitant]
     Active Substance: SUCRALFATE
  14. PHAZYME [Concomitant]
     Active Substance: DIMETHICONE 410
  15. VITAMIN B12 [Concomitant]
     Active Substance: CYANOCOBALAMIN
  16. VIT. D [Concomitant]
  17. SYNTHROID [Concomitant]
     Active Substance: LEVOTHYROXINE SODIUM
  18. LORAZEPAM. [Concomitant]
     Active Substance: LORAZEPAM
  19. VITAMIN D3 [Concomitant]
     Active Substance: CHOLECALCIFEROL
  20. ACAI [Concomitant]
  21. FERNKO [Concomitant]
  22. PREDNISONE. [Concomitant]
     Active Substance: PREDNISONE

REACTIONS (14)
  - Asthenia [None]
  - Cardiac disorder [None]
  - Arthropathy [None]
  - Impaired healing [None]
  - Tendon rupture [None]
  - Myalgia [None]
  - Arthralgia [None]
  - Cardiomegaly [None]
  - Quality of life decreased [None]
  - Tooth disorder [None]
  - Fatigue [None]
  - Tendon disorder [None]
  - Muscle disorder [None]
  - Pain [None]

NARRATIVE: CASE EVENT DATE: 201501
